FAERS Safety Report 6666472-7 (Version None)
Quarter: 2010Q2

REPORT INFORMATION
  Report Type: 
  Country: None (occurrence: None)
  Receive Date: 20100402
  Receipt Date: 20100325
  Transmission Date: 20101027
  Serious: Yes (Hospitalization)
  Sender: FDA-Public Use
  Company Number: DE-ABBOTT-10P-062-0634425-00

PATIENT
  Sex: Male
  Weight: 69 kg

DRUGS (3)
  1. HUMIRA [Suspect]
     Indication: PSORIATIC ARTHROPATHY
     Route: 058
     Dates: start: 20070601
  2. METHOTREXAT [Suspect]
     Indication: PSORIATIC ARTHROPATHY
     Route: 048
     Dates: start: 20080201, end: 20100322
  3. PREDNISOLONE [Concomitant]
     Indication: PSORIATIC ARTHROPATHY

REACTIONS (3)
  - ALVEOLITIS [None]
  - BRONCHOPNEUMONIA [None]
  - PULMONARY FIBROSIS [None]
